FAERS Safety Report 7460556-1 (Version None)
Quarter: 2011Q2

REPORT INFORMATION
  Report Type: 
  Country: None (occurrence: None)
  Receive Date: 20110505
  Receipt Date: 20110502
  Transmission Date: 20111010
  Serious: Yes (Hospitalization, Other)
  Sender: FDA-Public Use
  Company Number: US-PFIZER INC-2011020807

PATIENT
  Sex: Female

DRUGS (22)
  1. TOPAMAX [Concomitant]
     Indication: MIGRAINE
     Dosage: UNK
     Dates: start: 20040101, end: 20100101
  2. MAXALT [Concomitant]
     Indication: MIGRAINE
     Dosage: UNK
     Dates: start: 20030101, end: 20090101
  3. KLONOPIN [Concomitant]
     Indication: PANIC ATTACK
     Dosage: UNK
     Dates: start: 20030101, end: 20090101
  4. ACETAMINOPHEN AND HYDROCODONE BITARTRATE [Concomitant]
     Indication: PAIN
     Dosage: UNK
     Dates: start: 20030101, end: 20090101
  5. DULOXETINE [Concomitant]
     Indication: BIPOLAR DISORDER
  6. STADOL [Concomitant]
     Indication: PAIN
  7. KLONOPIN [Concomitant]
     Indication: DEPRESSION
  8. DARVON [Concomitant]
     Indication: PAIN
     Dosage: UNK
     Dates: start: 20030101, end: 20090101
  9. LIDOCAINE HCL VISCOUS [Concomitant]
     Dosage: UNK
     Dates: start: 20030101, end: 20090101
  10. TRICOR [Concomitant]
     Indication: BLOOD CHOLESTEROL
     Dosage: UNK
     Dates: start: 20030101, end: 20090101
  11. CHANTIX [Suspect]
     Indication: SMOKING CESSATION THERAPY
     Dosage: STARTER PACK
     Dates: start: 20070712, end: 20090301
  12. CHLORHEXIDINE [Concomitant]
     Dosage: UNK
     Dates: start: 20030101, end: 20090101
  13. DULOXETINE [Concomitant]
     Indication: DEPRESSION
  14. DULOXETINE [Concomitant]
     Indication: MANIA
  15. DULOXETINE [Concomitant]
     Indication: ANXIETY
     Dosage: UNK
     Dates: start: 20060101
  16. STADOL [Concomitant]
     Indication: MIGRAINE
     Dosage: UNK
     Dates: start: 20050101, end: 20080101
  17. KLONOPIN [Concomitant]
     Indication: ANXIETY
  18. SOMA [Concomitant]
     Indication: MUSCLE RELAXANT THERAPY
     Dosage: UNK
     Dates: start: 20030101, end: 20080101
  19. SEROQUEL [Concomitant]
     Indication: DEPRESSION
     Dosage: UNK
     Dates: start: 20030101
  20. FIORICET [Concomitant]
     Indication: TENSION HEADACHE
     Dosage: UNK
     Dates: start: 20040101, end: 20090101
  21. PROMETHAZINE [Concomitant]
     Indication: NAUSEA
     Dosage: UNK
     Dates: start: 20030101, end: 20090101
  22. ACETAMINOPHEN W/ CODEINE [Concomitant]
     Indication: PAIN
     Dosage: UNK
     Dates: start: 20040101, end: 20080101

REACTIONS (6)
  - INTENTIONAL OVERDOSE [None]
  - OBSESSIVE-COMPULSIVE DISORDER [None]
  - SUICIDE ATTEMPT [None]
  - LOSS OF CONSCIOUSNESS [None]
  - ANXIETY [None]
  - DEPRESSION [None]
